FAERS Safety Report 16753394 (Version 1)
Quarter: 2019Q3

REPORT INFORMATION
  Report Type: Spontaneous
  Country: FR (occurrence: FR)
  Receive Date: 20190829
  Receipt Date: 20190829
  Transmission Date: 20191005
  Serious: Yes (Life-Threatening, Hospitalization)
  Sender: FDA-Public Use
  Company Number: FR-TEVA-2019-FR-1097778

PATIENT
  Age: 57 Year
  Sex: Male

DRUGS (6)
  1. VALPROATE DE SODIUM [Suspect]
     Active Substance: VALPROATE SODIUM
     Indication: PRODUCT USED FOR UNKNOWN INDICATION
     Dosage: 2 G
     Route: 048
     Dates: start: 20190724, end: 20190724
  2. ALEPSAL 100 MG, COMPRIME [Suspect]
     Active Substance: PHENOBARBITAL
     Indication: PRODUCT ADMINISTRATION ERROR
     Route: 048
     Dates: start: 20190724, end: 20190724
  3. TAMSULOSINE [Suspect]
     Active Substance: TAMSULOSIN HYDROCHLORIDE
     Indication: PRODUCT USED FOR UNKNOWN INDICATION
     Dosage: 0.4
     Route: 048
     Dates: start: 20190724, end: 20190724
  4. LAMOTRIGINE. [Suspect]
     Active Substance: LAMOTRIGINE
     Indication: PRODUCT ADMINISTRATION ERROR
     Dosage: 200 MG
     Route: 048
     Dates: start: 20190724, end: 20190724
  5. LEVOMEPROMAZINE [Suspect]
     Active Substance: LEVOMEPROMAZINE
     Indication: PRODUCT USED FOR UNKNOWN INDICATION
     Dosage: 75 MG
     Route: 048
     Dates: start: 20190724, end: 20190724
  6. RIVOTRIL [Suspect]
     Active Substance: CLONAZEPAM
     Indication: PRODUCT ADMINISTRATION ERROR
     Dosage: 1 DF
     Route: 048
     Dates: start: 20190724, end: 20190724

REACTIONS (3)
  - Wrong patient received product [Recovered/Resolved]
  - Wrong schedule [Recovered/Resolved]
  - Altered state of consciousness [Recovered/Resolved]

NARRATIVE: CASE EVENT DATE: 20190724
